FAERS Safety Report 22289268 (Version 2)
Quarter: 2023Q2

REPORT INFORMATION
  Report Type: Spontaneous
  Country: JP (occurrence: JP)
  Receive Date: 20230505
  Receipt Date: 20230522
  Transmission Date: 20230722
  Serious: Yes (Other)
  Sender: FDA-Public Use
  Company Number: None

PATIENT
  Age: 48 Year
  Sex: Female

DRUGS (1)
  1. OPTIRAY 350 [Suspect]
     Active Substance: IOVERSOL
     Indication: Product used for unknown indication
     Dosage: 74.1% 100 ML 1 VIAL
     Dates: start: 202210, end: 202210

REACTIONS (2)
  - Erythema multiforme [Unknown]
  - Drug eruption [Unknown]
